FAERS Safety Report 26136711 (Version 1)
Quarter: 2025Q4

REPORT INFORMATION
  Report Type: Spontaneous
  Country: EU (occurrence: EU)
  Receive Date: 20251209
  Receipt Date: 20251209
  Transmission Date: 20260117
  Serious: Yes (Hospitalization)
  Sender: MYLAN
  Company Number: None

PATIENT
  Age: 85 Year
  Sex: Male

DRUGS (4)
  1. ABIRATERONE ACETATE [Suspect]
     Active Substance: ABIRATERONE ACETATE
     Indication: Prostate cancer
     Dosage: 1 GRAM, QD
     Dates: start: 20250306, end: 20250324
  2. ABIRATERONE ACETATE [Suspect]
     Active Substance: ABIRATERONE ACETATE
     Dosage: 1 GRAM, QD
     Route: 048
     Dates: start: 20250306, end: 20250324
  3. ABIRATERONE ACETATE [Suspect]
     Active Substance: ABIRATERONE ACETATE
     Dosage: 1 GRAM, QD
     Route: 048
     Dates: start: 20250306, end: 20250324
  4. ABIRATERONE ACETATE [Suspect]
     Active Substance: ABIRATERONE ACETATE
     Dosage: 1 GRAM, QD
     Dates: start: 20250306, end: 20250324

REACTIONS (3)
  - Hypertensive crisis [Recovered/Resolved]
  - Confusional state [Recovered/Resolved]
  - Fall [Recovered/Resolved]

NARRATIVE: CASE EVENT DATE: 20250331
